FAERS Safety Report 24584503 (Version 1)
Quarter: 2024Q4

REPORT INFORMATION
  Report Type: Spontaneous
  Country: US (occurrence: None)
  Receive Date: 20241105
  Receipt Date: 20241105
  Transmission Date: 20250115
  Serious: Yes (unspecified)
  Sender: Public
  Company Number: None

PATIENT
  Age: 68 Year
  Sex: Female
  Weight: 73.03 kg

DRUGS (5)
  1. ROSUVASTATIN CALCIUM [Suspect]
     Active Substance: ROSUVASTATIN CALCIUM
     Indication: Blood cholesterol increased
     Dosage: 1 TABLET ONCE  A DAY TAKEN BY MOUTH
     Route: 048
     Dates: start: 20240509, end: 20240924
  2. OMEPRAZOLE [Concomitant]
     Active Substance: OMEPRAZOLE
  3. MENAQUINONE 6 [Concomitant]
     Active Substance: MENAQUINONE 6
  4. VITAMIN D3 [Concomitant]
     Active Substance: CHOLECALCIFEROL
  5. UNSPECIFIED INGREDIENT [Concomitant]
     Active Substance: UNSPECIFIED INGREDIENT

REACTIONS (5)
  - Hypoaesthesia [None]
  - Paraesthesia [None]
  - Neuralgia [None]
  - Discomfort [None]
  - Insomnia [None]

NARRATIVE: CASE EVENT DATE: 20240515
